FAERS Safety Report 6541954-7 (Version None)
Quarter: 2010Q1

REPORT INFORMATION
  Report Type: 
  Country: None (occurrence: None)
  Receive Date: 20100119
  Receipt Date: 20091030
  Transmission Date: 20100710
  Serious: No
  Sender: FDA-Public Use
  Company Number: A0828337A

PATIENT
  Age: 48 Year
  Sex: Female
  Weight: 60.38 kg

DRUGS (2)
  1. HYDROCORTISONE TAB [Suspect]
     Indication: ADDISON'S DISEASE
     Route: 048
     Dates: start: 20081001
  2. LEVOTHROID [Concomitant]
     Route: 065

REACTIONS (3)
  - HYPERSENSITIVITY [None]
  - NASAL CONGESTION [None]
  - SNEEZING [None]
